FAERS Safety Report 17400454 (Version 1)
Quarter: 2020Q1

REPORT INFORMATION
  Report Type: Spontaneous
  Country: US (occurrence: US)
  Receive Date: 20200127
  Receipt Date: 20200127
  Transmission Date: 20200409
  Serious: Yes (Other)
  Sender: FDA-Public Use
  Company Number: None

PATIENT
  Age: 45 Year
  Sex: Male
  Weight: 121.74 kg

DRUGS (2)
  1. DIVALPROEX SODIUM DR 500MG [Suspect]
     Active Substance: DIVALPROEX SODIUM
     Route: 048
     Dates: start: 20200112, end: 20200120
  2. ARIPIPRAZOLE 15MG [Suspect]
     Active Substance: ARIPIPRAZOLE
     Indication: PSYCHOTIC DISORDER
     Dosage: ?          OTHER FREQUENCY:QAM;?
     Route: 048
     Dates: start: 20200116, end: 20200120

REACTIONS (2)
  - Myoclonus [None]
  - Fall [None]

NARRATIVE: CASE EVENT DATE: 20200120
